FAERS Safety Report 14524049 (Version 2)
Quarter: 2018Q1

REPORT INFORMATION
  Report Type: Report from Study
  Country: None (occurrence: US)
  Receive Date: 20180213
  Receipt Date: 20180215
  Transmission Date: 20180509
  Serious: Yes (Hospitalization, Other)
  Sender: FDA-Public Use
  Company Number: US-ABBVIE-18K-163-2230645-00

PATIENT
  Age: 50 Year
  Sex: Female

DRUGS (5)
  1. TRIAMTERENE. [Concomitant]
     Active Substance: TRIAMTERENE
     Indication: BLOOD PRESSURE MEASUREMENT
  2. HUMIRA [Suspect]
     Active Substance: ADALIMUMAB
     Indication: CROHN^S DISEASE
     Route: 058
     Dates: start: 201410
  3. HYDROCODONE [Concomitant]
     Active Substance: HYDROCODONE
     Indication: PRODUCT USED FOR UNKNOWN INDICATION
     Dosage: 5/325 THREE TIMES A DAY
  4. ALPRAZOLAM. [Concomitant]
     Active Substance: ALPRAZOLAM
     Indication: PRODUCT USED FOR UNKNOWN INDICATION
     Dosage: TWICE A DAY
  5. LEVOTHYROXINE. [Concomitant]
     Active Substance: LEVOTHYROXINE
     Indication: PRODUCT USED FOR UNKNOWN INDICATION
     Route: 048

REACTIONS (16)
  - Uterine leiomyoma [Recovered/Resolved]
  - Therapeutic response shortened [Not Recovered/Not Resolved]
  - Menstruation irregular [Recovered/Resolved]
  - Uterine haemorrhage [Recovered/Resolved]
  - Uterine operation [Not Recovered/Not Resolved]
  - Eye swelling [Unknown]
  - Anal skin tags [Unknown]
  - Haemorrhage [Recovered/Resolved]
  - Dysmenorrhoea [Recovered/Resolved]
  - Crohn^s disease [Unknown]
  - Nerve compression [Not Recovered/Not Resolved]
  - Haemorrhoids [Unknown]
  - Mouth ulceration [Unknown]
  - Intentional product misuse [Recovered/Resolved]
  - Uterine polyp [Recovered/Resolved]
  - Arthralgia [Not Recovered/Not Resolved]

NARRATIVE: CASE EVENT DATE: 2014
